FAERS Safety Report 11742319 (Version 1)
Quarter: 2015Q4

REPORT INFORMATION
  Report Type: Spontaneous
  Country: US (occurrence: None)
  Receive Date: 20151113
  Receipt Date: 20151113
  Transmission Date: 20160304
  Serious: No
  Sender: FDA-Public Use
  Company Number: None

PATIENT

DRUGS (1)
  1. LEVONORGESTREL 0.75MG OR 1.5MG VARIOUS [Suspect]
     Active Substance: LEVONORGESTREL

REACTIONS (1)
  - Product label issue [None]
